FAERS Safety Report 23345436 (Version 1)
Quarter: 2023Q4

REPORT INFORMATION
  Report Type: Spontaneous
  Country: IT (occurrence: IT)
  Receive Date: 20231228
  Receipt Date: 20231228
  Transmission Date: 20240110
  Serious: Yes (Hospitalization, Other)
  Sender: FDA-Public Use
  Company Number: IT-009507513-2312ITA001738

PATIENT
  Age: 52 Year
  Sex: Female

DRUGS (3)
  1. CARBOPLATIN [Suspect]
     Active Substance: CARBOPLATIN
     Indication: Triple negative breast cancer
     Dosage: 200 MILLIGRAM, EVERY WEEK (AREA UNDER THE CURVE (AUC) 2, QW)
     Route: 042
     Dates: start: 20230728, end: 20230818
  2. PACLITAXEL [Suspect]
     Active Substance: PACLITAXEL
     Indication: Triple negative breast cancer
     Dosage: 120 MILLIGRAM, EVERY WEEK(60 MG/SQ.M|, QW)
     Route: 042
     Dates: start: 20230728, end: 20230818
  3. PEMBROLIZUMAB [Suspect]
     Active Substance: PEMBROLIZUMAB
     Indication: Triple negative breast cancer
     Dosage: 200 MILLIGRAM (200 MILLIGRAM, Q3W)
     Route: 042
     Dates: start: 20230728, end: 20230728

REACTIONS (4)
  - Shock [Recovered/Resolved]
  - Pyrexia [Recovered/Resolved]
  - Staphylococcal infection [Recovered/Resolved]
  - Orthostatic hypotension [Recovered/Resolved]

NARRATIVE: CASE EVENT DATE: 20230805
